FAERS Safety Report 6743876-5 (Version None)
Quarter: 2010Q2

REPORT INFORMATION
  Report Type: 
  Country: None (occurrence: None)
  Receive Date: 20100527
  Receipt Date: 20100402
  Transmission Date: 20101027
  Serious: No
  Sender: FDA-Public Use
  Company Number: US-KINGPHARMUSA00001-K201000396

PATIENT
  Age: 41 Year
  Sex: Male
  Weight: 81.633 kg

DRUGS (2)
  1. FLECTOR [Suspect]
     Indication: MUSCLE STRAIN
     Dosage: 1 PATCH, SINGLE
     Route: 061
     Dates: start: 20100401, end: 20100401
  2. MUSCLE RELAXANTS [Concomitant]
     Dosage: UNK

REACTIONS (3)
  - DIZZINESS [None]
  - LIP SWELLING [None]
  - OEDEMA PERIPHERAL [None]
